FAERS Safety Report 7965175 (Version 6)
Quarter: 2012Q4

REPORT INFORMATION
  Report Type: 
  Country: US (occurrence: US)
  Receive Date: 20110527
  Receipt Date: 20121101
  Transmission Date: 20130627
  Serious: Yes (Hospitalization, Other)
  Sender: FDA-Public Use
  Company Number: US-ASTRAZENECA-2011SE30806

PATIENT
  Age: 82 Year
  Sex: Female

DRUGS (2)
  1. ARIMIDEX [Suspect]
     Route: 048
  2. PAIN PATCH [Concomitant]

REACTIONS (21)
  - Neoplasm malignant [Unknown]
  - Bedridden [Unknown]
  - Bone cancer [Unknown]
  - Fall [Unknown]
  - Head injury [Unknown]
  - Loss of consciousness [Unknown]
  - Limb injury [Unknown]
  - Joint injury [Unknown]
  - Rotator cuff syndrome [Unknown]
  - Amnesia [Unknown]
  - Mental impairment [Unknown]
  - Back pain [Unknown]
  - Weight decreased [Unknown]
  - Confusional state [Unknown]
  - Abasia [Unknown]
  - Muscular weakness [Unknown]
  - Pain [Unknown]
  - Malaise [Unknown]
  - Thinking abnormal [Unknown]
  - Decreased appetite [Unknown]
  - Hypersomnia [Unknown]
